FAERS Safety Report 20115240 (Version 1)
Quarter: 2021Q4

REPORT INFORMATION
  Report Type: Report from Study
  Country: GB (occurrence: GB)
  Receive Date: 20211125
  Receipt Date: 20211125
  Transmission Date: 20220303
  Serious: Yes (Hospitalization)
  Sender: FDA-Public Use
  Company Number: GB-BAXTER-2021BAX036988

PATIENT
  Age: 56 Year
  Sex: Male

DRUGS (11)
  1. WATER FOR INJECTION [Suspect]
     Active Substance: WATER
     Indication: Parenteral nutrition
     Route: 042
     Dates: start: 20211114, end: 20211115
  2. CERNEVIT [Suspect]
     Active Substance: VITAMINS
     Indication: Parenteral nutrition
     Route: 042
     Dates: start: 20211114, end: 20211115
  3. DEXTROSE [Suspect]
     Active Substance: DEXTROSE
     Indication: Parenteral nutrition
     Route: 042
     Dates: start: 20211114, end: 20211115
  4. IRON\MINERALS\POTASSIUM IOD\SODIUM FLUORIDE\SODIUM MOLYBDATE\SODIUM SE [Suspect]
     Active Substance: IRON\MINERALS\POTASSIUM IOD\SODIUM FLUORIDE\SODIUM MOLYBDATE\SODIUM SELENITE\ZINC
     Indication: Parenteral nutrition
     Route: 042
     Dates: start: 20211114, end: 20211115
  5. AMINO ACIDS, SOURCE UNSPECIFIED [Suspect]
     Active Substance: AMINO ACIDS, SOURCE UNSPECIFIED
     Indication: Parenteral nutrition
     Route: 042
     Dates: start: 20211114, end: 20211115
  6. MAGNESIUM SULFATE [Suspect]
     Active Substance: MAGNESIUM SULFATE
     Indication: Parenteral nutrition
     Dosage: BAG
     Route: 042
     Dates: start: 20211114, end: 20211115
  7. SMOFLIPID [Suspect]
     Active Substance: FISH OIL\MEDIUM-CHAIN TRIGLYCERIDES\OLIVE OIL\SOYBEAN OIL
     Indication: Parenteral nutrition
     Route: 042
     Dates: start: 20211114, end: 20211115
  8. SODIUM CHLORIDE [Suspect]
     Active Substance: SODIUM CHLORIDE
     Indication: Parenteral nutrition
     Route: 065
     Dates: start: 20211114, end: 20211115
  9. WATER [Suspect]
     Active Substance: WATER
     Indication: Parenteral nutrition
     Route: 042
     Dates: start: 20211114, end: 20211115
  10. PANTOPRAZOLE [Suspect]
     Active Substance: PANTOPRAZOLE
     Indication: Product used for unknown indication
     Route: 042
     Dates: start: 20211114, end: 20211114
  11. TPN [Suspect]
     Active Substance: AMINO ACIDS\DEXTROSE\ELECTROLYTES NOS\SOYBEAN OIL
     Indication: Parenteral nutrition
     Route: 065
     Dates: start: 2018

REACTIONS (2)
  - Catheter site pain [Recovering/Resolving]
  - Catheter site swelling [Recovering/Resolving]

NARRATIVE: CASE EVENT DATE: 20211114
